FAERS Safety Report 20682445 (Version 4)
Quarter: 2022Q2

REPORT INFORMATION
  Report Type: Spontaneous
  Country: US (occurrence: US)
  Receive Date: 20220407
  Receipt Date: 20220506
  Transmission Date: 20220721
  Serious: Yes (Hospitalization, Other)
  Sender: FDA-Public Use
  Company Number: US-GLAXOSMITHKLINE-US2022AMR059453

PATIENT
  Sex: Female

DRUGS (8)
  1. BENLYSTA [Suspect]
     Active Substance: BELIMUMAB
     Indication: Product used for unknown indication
     Dosage: UNK
     Dates: start: 201912
  2. NUCALA [Suspect]
     Active Substance: MEPOLIZUMAB
     Indication: Product used for unknown indication
     Dosage: UNK
  3. BENLYSTA [Suspect]
     Active Substance: BELIMUMAB
     Indication: Product used for unknown indication
     Dosage: UNK
  4. BENLYSTA [Suspect]
     Active Substance: BELIMUMAB
     Dosage: UNK UNK, Z, EVERY 4 WEEKS
     Dates: start: 20191206, end: 202112
  5. BENLYSTA [Suspect]
     Active Substance: BELIMUMAB
     Dosage: UNK
     Dates: start: 20220412
  6. BENLYSTA [Suspect]
     Active Substance: BELIMUMAB
     Indication: Product used for unknown indication
     Dosage: UNK
     Dates: end: 20190207
  7. METHOTREXATE [Suspect]
     Active Substance: METHOTREXATE
     Indication: Product used for unknown indication
     Dosage: UNK
  8. COVID-19 VACCINE NOS [Suspect]
     Active Substance: COVID-19 VACCINE NOS
     Indication: Product used for unknown indication
     Dosage: UNK
     Dates: start: 20220107

REACTIONS (12)
  - Systemic lupus erythematosus [Unknown]
  - Pneumothorax [Unknown]
  - Pericarditis [Unknown]
  - Mitral valve calcification [Unknown]
  - Cardiac disorder [Unknown]
  - Stenosis [Unknown]
  - Herpes zoster [Unknown]
  - Mitral valve disease [Unknown]
  - Regurgitation [Unknown]
  - Tinnitus [Unknown]
  - Product dose omission issue [Unknown]
  - Drug ineffective [Unknown]
